FAERS Safety Report 6200688-9 (Version None)
Quarter: 2009Q2

REPORT INFORMATION
  Report Type: 
  Country: None (occurrence: None)
  Receive Date: 20090522
  Receipt Date: 20090513
  Transmission Date: 20091009
  Serious: Yes (Hospitalization, Disabling, Other)
  Sender: FDA-Public Use
  Company Number: US-MERCK-0903USA01377

PATIENT
  Age: 51 Year
  Sex: Female

DRUGS (7)
  1. FOSAMAX [Suspect]
     Indication: OSTEOPOROSIS
     Route: 048
     Dates: start: 19950101, end: 20020401
  2. FOSAMAX [Suspect]
     Route: 048
     Dates: start: 20020101, end: 20070601
  3. PREMARIN [Concomitant]
     Route: 065
     Dates: start: 19830101
  4. REMIFEMIN [Concomitant]
     Route: 065
  5. VITAMIN D (UNSPECIFIED) [Concomitant]
     Route: 065
  6. CALCIUM (UNSPECIFIED) [Concomitant]
     Route: 065
  7. DIDRONEL [Concomitant]
     Route: 065

REACTIONS (17)
  - EXOSTOSIS [None]
  - FATIGUE [None]
  - GASTROINTESTINAL DISORDER [None]
  - GOUT [None]
  - HAEMORRHOIDS [None]
  - HOT FLUSH [None]
  - IMPAIRED HEALING [None]
  - INTESTINAL OBSTRUCTION [None]
  - JAW DISORDER [None]
  - MELANOSIS COLI [None]
  - MOOD ALTERED [None]
  - ORAL TORUS [None]
  - OSTEOLYSIS [None]
  - OSTEOMYELITIS [None]
  - OSTEONECROSIS [None]
  - SOFT TISSUE DISORDER [None]
  - URINARY TRACT INFECTION [None]
